FAERS Safety Report 23308735 (Version 2)
Quarter: 2023Q4

REPORT INFORMATION
  Report Type: Spontaneous
  Country: US (occurrence: US)
  Receive Date: 20231218
  Receipt Date: 20231228
  Transmission Date: 20240110
  Serious: Yes (Other)
  Sender: FDA-Public Use
  Company Number: US-BAYER-2023A180518

PATIENT
  Age: 35 Year
  Sex: Female

DRUGS (1)
  1. MIRENA [Suspect]
     Active Substance: LEVONORGESTREL
     Indication: Contraception
     Dosage: 20?G/DAY
     Route: 015
     Dates: start: 20231023, end: 20231215

REACTIONS (5)
  - Device dislocation [None]
  - Device breakage [None]
  - Pelvic pain [None]
  - Complication of device removal [None]
  - Complication of device removal [None]

NARRATIVE: CASE EVENT DATE: 20231117
